FAERS Safety Report 22255014 (Version 1)
Quarter: 2023Q2

REPORT INFORMATION
  Report Type: Spontaneous
  Country: US (occurrence: US)
  Receive Date: 20230426
  Receipt Date: 20230426
  Transmission Date: 20230721
  Serious: No
  Sender: FDA-Public Use
  Company Number: US-PFIZER INC-202300165423

PATIENT
  Age: 72 Year
  Sex: Male

DRUGS (1)
  1. PAXLOVID [Suspect]
     Active Substance: NIRMATRELVIR\RITONAVIR
     Indication: COVID-19 treatment
     Dosage: UNK
     Dates: start: 20230419

REACTIONS (10)
  - Oropharyngeal pain [Unknown]
  - Diarrhoea [Unknown]
  - Illness [Unknown]
  - Nausea [Unknown]
  - Dysgeusia [Unknown]
  - Dry mouth [Unknown]
  - Eating disorder [Unknown]
  - Vomiting [Unknown]
  - Feeling abnormal [Unknown]
  - Product dose omission issue [Unknown]

NARRATIVE: CASE EVENT DATE: 20230401
